FAERS Safety Report 7202281-8 (Version None)
Quarter: 2010Q4

REPORT INFORMATION
  Report Type: 
  Country: None (occurrence: None)
  Receive Date: 20101215
  Receipt Date: 20100901
  Transmission Date: 20110411
  Serious: Yes (Life-Threatening)
  Sender: FDA-Public Use
  Company Number: 54973

PATIENT
  Age: 14 Month
  Sex: Female
  Weight: 8.6183 kg

DRUGS (1)
  1. HYLAND'S TEETHING TABLETS [Suspect]
     Indication: TEETHING
     Dosage: 3 TABS QID WHEN TEETHING

REACTIONS (9)
  - AGGRESSION [None]
  - AGITATION [None]
  - CONVULSION [None]
  - DYSURIA [None]
  - ERYTHEMA [None]
  - MUSCULAR WEAKNESS [None]
  - PRODUCT QUALITY ISSUE [None]
  - PYREXIA [None]
  - URETHRAL DISORDER [None]
